FAERS Safety Report 22147680 (Version 5)
Quarter: 2025Q1

REPORT INFORMATION
  Report Type: Report from Study
  Country: CA (occurrence: CA)
  Receive Date: 20230328
  Receipt Date: 20250120
  Transmission Date: 20250408
  Serious: Yes (Death, Other)
  Sender: JOHNSON AND JOHNSON
  Company Number: CA-JNJFOC-20230204653

PATIENT
  Age: 5 Decade
  Sex: Female

DRUGS (1)
  1. REMICADE [Suspect]
     Active Substance: INFLIXIMAB
     Indication: Hidradenitis
     Dosage: THERAPY START DATE: 04-DEC-2019
     Route: 041
     Dates: start: 20191115, end: 20230614

REACTIONS (6)
  - Death [Fatal]
  - Squamous cell carcinoma [Not Recovered/Not Resolved]
  - Lung neoplasm malignant [Unknown]
  - Metastasis [Not Recovered/Not Resolved]
  - Purulent discharge [Unknown]
  - Lung disorder [Unknown]

NARRATIVE: CASE EVENT DATE: 20230301
